FAERS Safety Report 7519012-4 (Version None)
Quarter: 2011Q2

REPORT INFORMATION
  Report Type: 
  Country: None (occurrence: None)
  Receive Date: 20110602
  Receipt Date: 20110529
  Transmission Date: 20111010
  Serious: Yes (Other)
  Sender: FDA-Public Use
  Company Number: US-PFIZER INC-2011115921

PATIENT
  Sex: Male
  Weight: 81.633 kg

DRUGS (3)
  1. ANDROGEL [Concomitant]
     Dosage: UNK
  2. METOPROLOL [Concomitant]
     Dosage: UNK
  3. VIAGRA [Suspect]
     Indication: ERECTILE DYSFUNCTION
     Dosage: 50 MG, AS NEEDED
     Route: 048
     Dates: start: 20110501

REACTIONS (2)
  - DRUG INEFFECTIVE [None]
  - PENILE HAEMORRHAGE [None]
